FAERS Safety Report 13295614 (Version 1)
Quarter: 2017Q1

REPORT INFORMATION
  Report Type: Spontaneous
  Country: DE (occurrence: DE)
  Receive Date: 20170303
  Receipt Date: 20170303
  Transmission Date: 20170428
  Serious: Yes (Other)
  Sender: FDA-Public Use
  Company Number: GXKR2017DE001437

PATIENT

DRUGS (1)
  1. LEVETIRACETAM. [Suspect]
     Active Substance: LEVETIRACETAM
     Indication: EPILEPSY
     Dosage: 1000 MG, TWICE DAILY
     Route: 048
     Dates: start: 2012, end: 201701

REACTIONS (1)
  - Necrobiosis lipoidica diabeticorum [Recovering/Resolving]

NARRATIVE: CASE EVENT DATE: 201510
